FAERS Safety Report 11745583 (Version 1)
Quarter: 2015Q4

REPORT INFORMATION
  Report Type: Spontaneous
  Country: US (occurrence: None)
  Receive Date: 20151116
  Receipt Date: 20151116
  Transmission Date: 20160304
  Serious: Yes (Life-Threatening, Hospitalization)
  Sender: FDA-Public Use
  Company Number: None

PATIENT
  Age: 52 Year
  Sex: Male
  Weight: 56.7 kg

DRUGS (6)
  1. NICOTINE GUM [Concomitant]
     Active Substance: NICOTINE
  2. CHLORDIAZEPOXIDE [Concomitant]
     Active Substance: CHLORDIAZEPOXIDE
  3. WARFARIN [Suspect]
     Active Substance: WARFARIN
     Indication: PROPHYLAXIS
     Dosage: 1
     Route: 048
     Dates: start: 20151102, end: 20151109
  4. NICOTINE TRANSDERMAL SYSTEM [Concomitant]
     Active Substance: NICOTINE
  5. WARFARIN [Suspect]
     Active Substance: WARFARIN
     Indication: PULMONARY EMBOLISM
     Dosage: 1
     Route: 048
     Dates: start: 20151102, end: 20151109
  6. XARELTO [Concomitant]
     Active Substance: RIVAROXABAN

REACTIONS (7)
  - Paranoia [None]
  - Suicide attempt [None]
  - Hallucination [None]
  - Confusional state [None]
  - Brain neoplasm [None]
  - Drug abuse [None]
  - Self injurious behaviour [None]

NARRATIVE: CASE EVENT DATE: 20151107
